FAERS Safety Report 9588895 (Version 1)
Quarter: 2013Q4

REPORT INFORMATION
  Report Type: Spontaneous
  Country: US (occurrence: US)
  Receive Date: 20131003
  Receipt Date: 20131003
  Transmission Date: 20140711
  Serious: Yes (Other)
  Sender: FDA-Public Use
  Company Number: US-AMGEN-USASP2012066885

PATIENT
  Age: 71 Year
  Sex: Female

DRUGS (1)
  1. ENBREL [Suspect]
     Indication: RHEUMATOID ARTHRITIS
     Dosage: 50 MG, QWK
     Route: 058
     Dates: start: 200909

REACTIONS (6)
  - Skin cancer [Unknown]
  - Mobility decreased [Unknown]
  - Vaginal cyst [Unknown]
  - Cyst [Unknown]
  - Oedema peripheral [Unknown]
  - Bursitis [Unknown]
